FAERS Safety Report 5004328-6 (Version None)
Quarter: 2006Q2

REPORT INFORMATION
  Report Type: 
  Country: None (occurrence: None)
  Receive Date: 20060517
  Receipt Date: 20050706
  Transmission Date: 20061013
  Serious: Yes (Disabling)
  Sender: FDA-Public Use
  Company Number: US-MERCK-0507USA01037

PATIENT
  Age: 58 Year
  Sex: Male

DRUGS (1)
  1. VIOXX [Suspect]
     Route: 048

REACTIONS (3)
  - ANGINA PECTORIS [None]
  - ARTERIOSCLEROSIS CORONARY ARTERY [None]
  - DYSPNOEA [None]
